FAERS Safety Report 15529605 (Version 2)
Quarter: 2021Q3

REPORT INFORMATION
  Report Type: Spontaneous
  Country: DE (occurrence: DE)
  Receive Date: 20181020
  Receipt Date: 20210826
  Transmission Date: 20211014
  Serious: Yes (Hospitalization, Other)
  Sender: FDA-Public Use
  Company Number: DE-AUROBINDO-AUR-APL-2018-051410

PATIENT
  Age: 54 Year
  Sex: Female

DRUGS (13)
  1. LEVETIRACETAM. [Interacting]
     Active Substance: LEVETIRACETAM
     Dosage: 2500 MG, QD
     Route: 065
  2. VALPROIC ACID. [Interacting]
     Active Substance: VALPROIC ACID
     Indication: PARTIAL SEIZURES
     Dosage: 900 MG, QD
     Route: 065
  3. TOPIRAMATE. [Concomitant]
     Active Substance: TOPIRAMATE
     Indication: PRODUCT USED FOR UNKNOWN INDICATION
     Dosage: UNK
     Route: 065
  4. HALOPERIDOL. [Concomitant]
     Active Substance: HALOPERIDOL
     Indication: PRODUCT USED FOR UNKNOWN INDICATION
     Dosage: 4 MG, UNK
     Route: 065
  5. OXCARBAZEPINE. [Concomitant]
     Active Substance: OXCARBAZEPINE
     Indication: PRODUCT USED FOR UNKNOWN INDICATION
     Dosage: UNK
     Route: 065
  6. DIAZEPAM. [Concomitant]
     Active Substance: DIAZEPAM
     Indication: PRODUCT USED FOR UNKNOWN INDICATION
     Dosage: 10 MG, UNK
     Route: 065
  7. LEVETIRACETAM. [Interacting]
     Active Substance: LEVETIRACETAM
     Indication: PARTIAL SEIZURES
     Dosage: 3000 MG, QD (11 MG/L)
     Route: 065
  8. PHENYTOIN. [Concomitant]
     Active Substance: PHENYTOIN
     Indication: PRODUCT USED FOR UNKNOWN INDICATION
     Dosage: UNK
     Route: 065
  9. CARBAMAZEPINE. [Concomitant]
     Active Substance: CARBAMAZEPINE
     Indication: PRODUCT USED FOR UNKNOWN INDICATION
     Dosage: UNK
     Route: 065
  10. LEVETIRACETAM. [Interacting]
     Active Substance: LEVETIRACETAM
     Dosage: 4000 MG, UNK (7.3 MG/L)
     Route: 065
  11. LAMOTRIGINE. [Suspect]
     Active Substance: LAMOTRIGINE
     Indication: PARTIAL SEIZURES
     Dosage: 700 MG, UNK
     Route: 065
  12. LAMOTRIGINE. [Interacting]
     Active Substance: LAMOTRIGINE
     Dosage: INCREASED TO 250 MG DAILY ()
     Route: 065
  13. LAMOTRIGINE. [Interacting]
     Active Substance: LAMOTRIGINE
     Dosage: 100 MG, QD
     Route: 065

REACTIONS (11)
  - Drug interaction [Unknown]
  - Behaviour disorder [Unknown]
  - Restlessness [Unknown]
  - Paranoia [Recovered/Resolved]
  - Tension [Unknown]
  - Aggression [Unknown]
  - Psychotic disorder [Recovered/Resolved]
  - Overdose [Unknown]
  - Delusion [Unknown]
  - Anticonvulsant drug level above therapeutic [Unknown]
  - Off label use [Unknown]
